FAERS Safety Report 13213671 (Version 1)
Quarter: 2017Q1

REPORT INFORMATION
  Report Type: Report from Study
  Country: US (occurrence: US)
  Receive Date: 20170210
  Receipt Date: 20170210
  Transmission Date: 20170428
  Serious: Yes (Death, Other)
  Sender: FDA-Public Use
  Company Number: US-MYLANLABS-2017M1007600

PATIENT

DRUGS (3)
  1. FULVESTRANT [Suspect]
     Active Substance: FULVESTRANT
     Dosage: 250MG ON DAY 14 AND DAY 28 OF THE FIRST CYCLE, AND THEREAFTER EVERY 28 DAYS
     Route: 030
  2. FULVESTRANT [Suspect]
     Active Substance: FULVESTRANT
     Indication: BREAST CANCER METASTATIC
     Dosage: INITIAL LOADING DOSE OF 500MG ON DAY 1
     Route: 030
  3. ANASTROZOLE. [Suspect]
     Active Substance: ANASTROZOLE
     Indication: BREAST CANCER METASTATIC
     Dosage: 1MG EACH DAY
     Route: 048

REACTIONS (1)
  - Diverticular perforation [Fatal]
